FAERS Safety Report 6454298-9 (Version None)
Quarter: 2009Q4

REPORT INFORMATION
  Report Type: 
  Country: None (occurrence: None)
  Receive Date: 20091124
  Receipt Date: 20091111
  Transmission Date: 20100525
  Serious: Yes (Other)
  Sender: FDA-Public Use
  Company Number: LB-ELI_LILLY_AND_COMPANY-LB200911002956

PATIENT
  Age: 43 Year
  Sex: Male

DRUGS (3)
  1. FLUOXETINE HYDROCHLORIDE [Suspect]
     Indication: MIGRAINE
     Dosage: 20 MG, DAILY (1/D)
  2. FLUOXETINE HYDROCHLORIDE [Suspect]
     Dosage: 40 MG, DAILY (1/D)
  3. FLUOXETINE HYDROCHLORIDE [Suspect]
     Dosage: 20 MG, DAILY (1/D)

REACTIONS (3)
  - CAROTIDYNIA [None]
  - MUSCULOSKELETAL CHEST PAIN [None]
  - OFF LABEL USE [None]
